FAERS Safety Report 24263842 (Version 1)
Quarter: 2024Q3

REPORT INFORMATION
  Report Type: Spontaneous
  Country: US (occurrence: US)
  Receive Date: 20240829
  Receipt Date: 20240829
  Transmission Date: 20241017
  Serious: No
  Sender: APOTEX
  Company Number: US-APOTEX-2024AP009597

PATIENT
  Age: 27 Year
  Sex: Female

DRUGS (18)
  1. BUPROPION [Suspect]
     Active Substance: BUPROPION
     Indication: Product used for unknown indication
     Dosage: MAX TOTAL DAILY DOSE 200 MG, QD
     Route: 065
     Dates: start: 201709, end: 201803
  2. DIVALPROEX SODIUM [Suspect]
     Active Substance: DIVALPROEX SODIUM
     Indication: Product used for unknown indication
     Dosage: 750 MILLIGRAM, MAX TOTAL DAILY DOSE  1500 MG
     Route: 065
     Dates: start: 201612, end: 201705
  3. DIVALPROEX SODIUM [Suspect]
     Active Substance: DIVALPROEX SODIUM
     Dosage: 500 MILLIGRAM, MAX TOTAL DAILY DOSE  1500 MG
     Route: 065
     Dates: start: 201705, end: 201801
  4. DIVALPROEX SODIUM [Suspect]
     Active Substance: DIVALPROEX SODIUM
     Dosage: 250 MILLIGRAM, TID
     Route: 065
  5. OXCARBAZEPINE [Suspect]
     Active Substance: OXCARBAZEPINE
     Indication: Product used for unknown indication
     Dosage: 600 MILLIGRAM, MAX TOTAL DAILY DOSE 1200 MG
     Route: 065
     Dates: start: 201911, end: 202005
  6. OXCARBAZEPINE [Suspect]
     Active Substance: OXCARBAZEPINE
     Dosage: 900 MILLIGRAM, MAX TOTAL DAILY DOSE 1200 MG
     Route: 065
     Dates: start: 202006, end: 202101
  7. OXCARBAZEPINE [Suspect]
     Active Substance: OXCARBAZEPINE
     Dosage: 1200 MILLIGRAM, MAX TOTAL DAILY DOSE 1200 MG
     Route: 065
     Dates: start: 202201, end: 202203
  8. RISPERIDONE [Suspect]
     Active Substance: RISPERIDONE
     Indication: Product used for unknown indication
     Dosage: 4 MILLIGRAM, QD (MAX DAILY DOSE)
     Route: 065
     Dates: start: 201703, end: 201705
  9. RISPERIDONE [Suspect]
     Active Substance: RISPERIDONE
     Dosage: 4 MILLIGRAM, QD (MAX DAILY DOSE)
     Route: 065
     Dates: start: 201705, end: 201803
  10. PALIPERIDONE PALMITATE [Suspect]
     Active Substance: PALIPERIDONE PALMITATE
     Indication: Product used for unknown indication
     Dosage: 234 MILLIGRAM, QD (MAX DAILY DOSE 234 MG)
     Route: 065
     Dates: start: 201612, end: 201703
  11. PALIPERIDONE PALMITATE [Suspect]
     Active Substance: PALIPERIDONE PALMITATE
     Dosage: UNK
     Route: 065
     Dates: start: 201910, end: 202006
  12. ARIPIPRAZOLE [Concomitant]
     Active Substance: ARIPIPRAZOLE
     Indication: Product used for unknown indication
     Dosage: 400 MILLIGRAM, QD  (MAX DAILY DOSE 400 MG)
     Route: 065
     Dates: start: 202110, end: 202201
  13. HALOPERIDOL [Concomitant]
     Active Substance: HALOPERIDOL
     Indication: Product used for unknown indication
     Dosage: 20 MG, QD (MAX DAILY DOSE 20 MG)
     Route: 065
     Dates: start: 202201, end: 202204
  14. PALIPERIDONE [Concomitant]
     Active Substance: PALIPERIDONE
     Indication: Product used for unknown indication
     Dosage: 6 MILLIGRAM, QD (MAX DAILY DOSE 6 MG)
     Route: 065
     Dates: start: 201612, end: 201703
  15. PALIPERIDONE [Concomitant]
     Active Substance: PALIPERIDONE
     Dosage: 6 MILLIGRAM, BID
     Route: 065
  16. PALIPERIDONE [Concomitant]
     Active Substance: PALIPERIDONE
     Dosage: 6 MILLIGRAM, QD
     Route: 065
  17. QUETIAPINE [Concomitant]
     Active Substance: QUETIAPINE
     Indication: Product used for unknown indication
     Dosage: 100 MILLIGRAM, MAX DAILY DOSE 800 MG
     Route: 065
     Dates: start: 202006, end: 202102
  18. QUETIAPINE [Concomitant]
     Active Substance: QUETIAPINE
     Dosage: 800 MILLIGRAM, MAX DAILY DOSE 800 MG
     Route: 065
     Dates: start: 202108, end: 202109

REACTIONS (8)
  - Fatigue [Recovered/Resolved]
  - Somnolence [Unknown]
  - Disorientation [Recovering/Resolving]
  - Peripheral swelling [Unknown]
  - Treatment noncompliance [Unknown]
  - Oedema peripheral [Unknown]
  - Increased appetite [Unknown]
  - Psychotic disorder [Recovering/Resolving]
